FAERS Safety Report 7560065-5 (Version None)
Quarter: 2011Q2

REPORT INFORMATION
  Report Type: 
  Country: None (occurrence: None)
  Receive Date: 20110621
  Receipt Date: 20110616
  Transmission Date: 20111010
  Serious: Yes (Hospitalization, Other)
  Sender: FDA-Public Use
  Company Number: GB-ABBOTT-11P-167-0731177-00

PATIENT
  Sex: Female

DRUGS (10)
  1. LEVOTHYROXINE SODIUM [Suspect]
     Indication: PRODUCT USED FOR UNKNOWN INDICATION
  2. ANTIHISTAMINES [Concomitant]
     Indication: ANTIALLERGIC THERAPY
  3. NORVIR [Suspect]
     Indication: HIV INFECTION
     Dates: start: 20100901, end: 20110201
  4. TRUVADA [Suspect]
     Indication: HIV INFECTION
  5. KALETRA [Suspect]
     Dates: start: 20101201
  6. TRUVADA [Suspect]
     Dates: start: 20110101, end: 20110201
  7. KALETRA [Suspect]
     Indication: HIV INFECTION
     Dates: start: 20040201, end: 20100601
  8. RANITIDINE [Concomitant]
     Indication: ANTIALLERGIC THERAPY
  9. ANADIN [Suspect]
     Indication: PRODUCT USED FOR UNKNOWN INDICATION
  10. DARUNAVIR ETHANOLATE [Suspect]
     Indication: HIV INFECTION
     Dates: end: 20110201

REACTIONS (3)
  - ANGIOEDEMA [None]
  - DYSPNOEA [None]
  - URTICARIA [None]
